FAERS Safety Report 7997510-7 (Version None)
Quarter: 2011Q4

REPORT INFORMATION
  Report Type: 
  Country: None (occurrence: None)
  Receive Date: 20111221
  Receipt Date: 20111216
  Transmission Date: 20120403
  Serious: Yes (Other)
  Sender: FDA-Public Use
  Company Number: CA-NAPPMUNDI-CAN-2011-0002462

PATIENT
  Age: 55 Year
  Sex: Female

DRUGS (9)
  1. BUTRANS [Suspect]
     Indication: BACK PAIN
     Dosage: 20 MCG, Q1H
     Route: 062
  2. BUTRANS [Suspect]
     Dosage: 5 MCG, Q1H
     Route: 062
     Dates: end: 20110101
  3. BUTRANS [Suspect]
     Dosage: 15 MCG, Q1H
     Route: 062
     Dates: start: 20110101, end: 20110101
  4. BUTRANS [Suspect]
     Dosage: 10 MCG, Q1H
     Route: 062
     Dates: end: 20110101
  5. ESCITALOPRAM [Suspect]
     Indication: DEPRESSION
     Dosage: 20 MG, DAILY
     Route: 048
     Dates: end: 20110801
  6. BACLOFEN [Suspect]
     Indication: MUSCLE SPASMS
     Dosage: 20 MG, TID PRN
  7. CLONAZEPAM [Suspect]
     Indication: ANXIETY
     Dosage: 1 MG, TID PRN
     Route: 048
     Dates: start: 20111211
  8. NABILONE [Suspect]
     Indication: BACK PAIN
     Dosage: .25 MG, UNK
     Route: 048
     Dates: end: 20110801
  9. CIPRO XR [Concomitant]
     Indication: URINARY TRACT INFECTION
     Dosage: 1000 MG, UNK
     Route: 048
     Dates: start: 20111208

REACTIONS (20)
  - DIARRHOEA [None]
  - HALLUCINATION [None]
  - URINARY TRACT INFECTION [None]
  - GAIT DISTURBANCE [None]
  - PULSE PRESSURE INCREASED [None]
  - DIZZINESS [None]
  - EUPHORIC MOOD [None]
  - DRUG INTERACTION [None]
  - PALPITATIONS [None]
  - BALANCE DISORDER [None]
  - ASTHENIA [None]
  - SOMNOLENCE [None]
  - DYSPNOEA [None]
  - VOMITING [None]
  - HYPOPNOEA [None]
  - MUSCLE SPASMS [None]
  - DISORIENTATION [None]
  - HEADACHE [None]
  - ANXIETY [None]
  - DISTURBANCE IN ATTENTION [None]
